FAERS Safety Report 18589062 (Version 3)
Quarter: 2021Q3

REPORT INFORMATION
  Report Type: Spontaneous
  Country: US (occurrence: US)
  Receive Date: 20201208
  Receipt Date: 20210722
  Transmission Date: 20211014
  Serious: Yes (Other)
  Sender: FDA-Public Use
  Company Number: US-BRISTOL-MYERS SQUIBB COMPANY-BMS-2020-103661

PATIENT
  Age: 59 Year
  Sex: Male
  Weight: 147.39 kg

DRUGS (1)
  1. SPRYCEL [Suspect]
     Active Substance: DASATINIB
     Indication: CHRONIC MYELOID LEUKAEMIA
     Dosage: AT A CURRENT DOSE OF 50 MILLIGRAM DAILY
     Route: 048
     Dates: start: 200911, end: 202012

REACTIONS (6)
  - Pleural effusion [Unknown]
  - Fluid retention [Unknown]
  - Pericardial effusion [Unknown]
  - Laboratory test abnormal [Unknown]
  - Drug ineffective [Unknown]
  - Blood pressure increased [Unknown]

NARRATIVE: CASE EVENT DATE: 20201022
